FAERS Safety Report 18096193 (Version 1)
Quarter: 2020Q3

REPORT INFORMATION
  Report Type: Spontaneous
  Country: US (occurrence: US)
  Receive Date: 20200730
  Receipt Date: 20200730
  Transmission Date: 20201103
  Serious: No
  Sender: FDA-Public Use
  Company Number: US-009507513-2007USA008293

PATIENT
  Age: 57 Year
  Sex: Female

DRUGS (3)
  1. ALBUTEROL SULFATE. [Suspect]
     Active Substance: ALBUTEROL SULFATE
     Dosage: 1 PUFF DAILY, PATIENT TAKES AS NEEDED
     Dates: start: 202007
  2. ALBUTEROL SULFATE. [Suspect]
     Active Substance: ALBUTEROL SULFATE
     Indication: ASTHMA
     Dosage: 1 PUFF DAILY, PATIENT TAKES AS NEEDED
     Dates: start: 2014
  3. SINGULAIR [Suspect]
     Active Substance: MONTELUKAST SODIUM
     Dosage: WHEN NECESSARY
     Route: 048

REACTIONS (7)
  - Product quality issue [Unknown]
  - Nervousness [Not Recovered/Not Resolved]
  - Product use issue [Unknown]
  - Product dose omission issue [Unknown]
  - Bronchitis [Recovered/Resolved]
  - Poor quality device used [Unknown]
  - Irritability [Not Recovered/Not Resolved]

NARRATIVE: CASE EVENT DATE: 2014
